FAERS Safety Report 10072766 (Version 3)
Quarter: 2014Q2

REPORT INFORMATION
  Report Type: Spontaneous
  Country: US (occurrence: US)
  Receive Date: 20140411
  Receipt Date: 20140616
  Transmission Date: 20141212
  Serious: No
  Sender: FDA-Public Use
  Company Number: US-PFIZER INC-2014102028

PATIENT
  Age: 55 Year
  Sex: Male
  Weight: 78 kg

DRUGS (2)
  1. CHANTIX [Suspect]
     Indication: SMOKING CESSATION THERAPY
     Dosage: 1 MG, 2X/DAY
     Route: 048
     Dates: start: 20140115, end: 20140215
  2. CHANTIX [Suspect]
     Indication: NICOTINE DEPENDENCE

REACTIONS (5)
  - Abnormal behaviour [Recovered/Resolved]
  - Feeling abnormal [Recovered/Resolved]
  - Hostility [Recovered/Resolved]
  - Agitation [Recovered/Resolved]
  - Irritability [Recovered/Resolved]
